FAERS Safety Report 5002553-1 (Version None)
Quarter: 2006Q2

REPORT INFORMATION
  Report Type: 
  Country: None (occurrence: None)
  Receive Date: 20060515
  Receipt Date: 20050414
  Transmission Date: 20061013
  Serious: Yes (Hospitalization, Other)
  Sender: FDA-Public Use
  Company Number: US-MERCK-0504USA03022

PATIENT
  Age: 76 Year
  Sex: Female
  Weight: 64 kg

DRUGS (8)
  1. VIOXX [Suspect]
     Indication: ARTHRITIS
     Route: 048
     Dates: start: 20000313, end: 20030101
  2. NORVASC [Concomitant]
     Route: 065
  3. DIGOXIN [Concomitant]
     Route: 065
  4. LOTENSIN [Concomitant]
     Route: 065
  5. COUMADIN [Concomitant]
     Route: 065
  6. DILANTIN [Concomitant]
     Route: 065
  7. PRILOSEC [Concomitant]
     Route: 065
  8. NIFEDIPINE [Concomitant]
     Route: 065

REACTIONS (10)
  - CARDIAC FAILURE [None]
  - CEREBROVASCULAR ACCIDENT [None]
  - CHEST PAIN [None]
  - CONVULSION [None]
  - HEPATOCELLULAR DAMAGE [None]
  - MYOCARDIAL INFARCTION [None]
  - PRESCRIBED OVERDOSE [None]
  - RENAL INJURY [None]
  - THROMBOSIS [None]
  - ULCER [None]
